FAERS Safety Report 17689217 (Version 1)
Quarter: 2020Q2

REPORT INFORMATION
  Report Type: Report from Study
  Country: CA (occurrence: CA)
  Receive Date: 20200421
  Receipt Date: 20200421
  Transmission Date: 20200714
  Serious: Yes (Hospitalization)
  Sender: FDA-Public Use
  Company Number: CA-EISAI MEDICAL RESEARCH-EC-2020-073376

PATIENT
  Age: 57 Year
  Sex: Female

DRUGS (11)
  1. TAXOL [Suspect]
     Active Substance: PACLITAXEL
     Dosage: DOSE AND FREQUENCY UNKNOWN
     Route: 042
  2. TAXOTERE [Suspect]
     Active Substance: DOCETAXEL
     Indication: CHEMOTHERAPY
     Dosage: DOSE AND FREQUENCY UNKNOWN
     Route: 042
  3. TAXOL [Suspect]
     Active Substance: PACLITAXEL
     Indication: CHEMOTHERAPY
     Dosage: DOSE AND FREQUENCY UNKNOWN
     Route: 042
  4. GEMCITABINE. [Suspect]
     Active Substance: GEMCITABINE
     Indication: CHEMOTHERAPY
     Dosage: DOSAGE, FORM AND ROUTE OF ADMINISTRATION, FREQUENCY NOT KNOWN
  5. TAMOXIFEN [Suspect]
     Active Substance: TAMOXIFEN
     Indication: CHEMOTHERAPY
     Route: 048
  6. ERIBULIN [Suspect]
     Active Substance: ERIBULIN
     Indication: CHEMOTHERAPY
     Dosage: DOSE AND FREQUENCY UNKNOWN
     Route: 042
  7. FULVESTRANT. [Suspect]
     Active Substance: FULVESTRANT
     Indication: CHEMOTHERAPY
     Dosage: FORM AND ROUTE OF ADMINISTRATION, FREQUENCY NOT KNOWN
  8. PALBOCICLIB [Suspect]
     Active Substance: PALBOCICLIB
     Indication: CHEMOTHERAPY
     Route: 048
  9. VINORELBINE [Suspect]
     Active Substance: VINORELBINE TARTRATE
     Indication: CHEMOTHERAPY
     Dosage: DOSAGE, FORM AND ROUTE OF ADMINISTRATION, FREQUENCY NOT KNOWN
  10. CAPECITABINE. [Suspect]
     Active Substance: CAPECITABINE
     Indication: BREAST CANCER
     Dosage: DOSAGE, FORM AND ROUTE OF ADMINISTRATION, FREQUENCY NOT KNOWN
  11. FEMARA [Suspect]
     Active Substance: LETROZOLE
     Indication: BREAST CANCER
     Route: 048

REACTIONS (4)
  - Neuropathy peripheral [Unknown]
  - Breast cancer [Unknown]
  - Malignant neoplasm progression [Unknown]
  - Drug intolerance [Unknown]
